FAERS Safety Report 4396763-4 (Version None)
Quarter: 2004Q3

REPORT INFORMATION
  Report Type: 
  Country: None (occurrence: None)
  Receive Date: 20040714
  Receipt Date: 20040708
  Transmission Date: 20050211
  Serious: Yes (Other)
  Sender: FDA-Public Use
  Company Number: 200416763GDDC

PATIENT
  Age: 27 Year
  Sex: Female
  Weight: 48 kg

DRUGS (1)
  1. FLAGYL [Suspect]
     Indication: TRICHOMONIASIS
     Dosage: DOSE: 250 MG 8 TABLETS IN A SINGLE DOSE
     Route: 048
     Dates: start: 20040707, end: 20040707

REACTIONS (3)
  - DEHYDRATION [None]
  - NAUSEA [None]
  - VOMITING [None]
